FAERS Safety Report 16182346 (Version 1)
Quarter: 2019Q2

REPORT INFORMATION
  Report Type: Spontaneous
  Country: FR (occurrence: FR)
  Receive Date: 20190411
  Receipt Date: 20190411
  Transmission Date: 20190711
  Serious: Yes (Hospitalization)
  Sender: FDA-Public Use
  Company Number: FR-ROCHE-2301167

PATIENT
  Age: 73 Year
  Sex: Female

DRUGS (1)
  1. MABTHERA [Suspect]
     Active Substance: RITUXIMAB
     Indication: MUSCULAR WEAKNESS
     Dosage: MOST RECENT DOSE  31/AUG/2018
     Route: 041
     Dates: start: 20060601

REACTIONS (2)
  - Tooth infection [Recovered/Resolved with Sequelae]
  - Wisdom teeth removal [Recovered/Resolved with Sequelae]

NARRATIVE: CASE EVENT DATE: 20181015
